FAERS Safety Report 17843528 (Version 1)
Quarter: 2020Q2

REPORT INFORMATION
  Report Type: Spontaneous
  Country: PT (occurrence: PT)
  Receive Date: 20200531
  Receipt Date: 20200531
  Transmission Date: 20200714
  Serious: Yes (Hospitalization, Other)
  Sender: FDA-Public Use
  Company Number: PT-HIKMA PHARMACEUTICALS USA INC.-PT-H14001-20-02619

PATIENT
  Age: 15 Year
  Sex: Male

DRUGS (9)
  1. DIAZEPAM. [Suspect]
     Active Substance: DIAZEPAM
     Indication: TOURETTE^S DISORDER
     Route: 065
  2. LORAZEPAM. [Suspect]
     Active Substance: LORAZEPAM
     Indication: TOURETTE^S DISORDER
     Route: 065
  3. MIDAZOLAM. [Suspect]
     Active Substance: MIDAZOLAM
     Indication: TOURETTE^S DISORDER
     Route: 065
  4. TIAPRIDE [Suspect]
     Active Substance: TIAPRIDE
     Indication: TOURETTE^S DISORDER
     Route: 065
  5. SERTRALINE [Suspect]
     Active Substance: SERTRALINE HYDROCHLORIDE
     Indication: PRODUCT USED FOR UNKNOWN INDICATION
     Route: 065
  6. CLONIDINE. [Suspect]
     Active Substance: CLONIDINE
     Indication: TOURETTE^S DISORDER
     Route: 065
  7. ARIPIPRAZOLE. [Suspect]
     Active Substance: ARIPIPRAZOLE
     Indication: TOURETTE^S DISORDER
     Route: 065
  8. TETRABENAZINE. [Suspect]
     Active Substance: TETRABENAZINE
     Indication: TOURETTE^S DISORDER
     Route: 065
  9. TETRABENAZINE. [Suspect]
     Active Substance: TETRABENAZINE
     Indication: TOURETTE^S DISORDER
     Route: 065

REACTIONS (2)
  - Catatonia [Recovering/Resolving]
  - Parkinsonism [Recovered/Resolved]
